FAERS Safety Report 15867425 (Version 3)
Quarter: 2019Q3

REPORT INFORMATION
  Report Type: Spontaneous
  Country: US (occurrence: US)
  Receive Date: 20190125
  Receipt Date: 20190819
  Transmission Date: 20191004
  Serious: No
  Sender: FDA-Public Use
  Company Number: US-MYLANLABS-2019M1003277

PATIENT
  Age: 72 Year
  Sex: Female

DRUGS (4)
  1. TERAZOSIN [Concomitant]
     Active Substance: TERAZOSIN HYDROCHLORIDE
     Indication: BLOOD PRESSURE ABNORMAL
     Dosage: 1 MILLIGRAM, QD
  2. CARVEDILOL. [Concomitant]
     Active Substance: CARVEDILOL
     Dosage: 12 MILLIGRAM, BID
  3. CLONIDINE TRANSDERMAL SYSTEM [Suspect]
     Active Substance: CLONIDINE
     Indication: HYPERTENSION
     Dosage: UNK
     Route: 062
     Dates: start: 20181210
  4. HYDRALAZINE [Concomitant]
     Active Substance: HYDRALAZINE HYDROCHLORIDE
     Indication: BLOOD PRESSURE ABNORMAL
     Dosage: UNK UNK, PRN

REACTIONS (5)
  - Application site pruritus [Unknown]
  - Application site erythema [Unknown]
  - Application site irritation [Unknown]
  - Therapeutic product effect decreased [Not Recovered/Not Resolved]
  - Application site vesicles [Unknown]

NARRATIVE: CASE EVENT DATE: 20181210
